FAERS Safety Report 8169947-7 (Version None)
Quarter: 2012Q1

REPORT INFORMATION
  Report Type: 
  Country: None (occurrence: None)
  Receive Date: 20120228
  Receipt Date: 20120228
  Transmission Date: 20120608
  Serious: Yes (Life-Threatening)
  Sender: FDA-Public Use
  Company Number: None

PATIENT
  Sex: Female
  Weight: 81.7 kg

DRUGS (3)
  1. QUETIAPINE [Concomitant]
     Indication: POST-TRAUMATIC STRESS DISORDER
     Route: 048
  2. SEROQUEL [Suspect]
     Indication: DEPRESSION
     Dosage: 1600MG
     Route: 048
     Dates: start: 20110804, end: 20120223
  3. CITALOPRAM HYDROBROMIDE [Concomitant]
     Route: 048

REACTIONS (5)
  - INCORRECT DOSE ADMINISTERED [None]
  - AGITATION [None]
  - COGNITIVE DISORDER [None]
  - SUICIDE ATTEMPT [None]
  - CONFUSIONAL STATE [None]
